FAERS Safety Report 6068241-8 (Version None)
Quarter: 2009Q1

REPORT INFORMATION
  Report Type: 
  Country: None (occurrence: None)
  Receive Date: 20090206
  Receipt Date: 20090127
  Transmission Date: 20090719
  Serious: Yes (Other)
  Sender: FDA-Public Use
  Company Number: PHHY2009FR03049

PATIENT
  Age: 88 Year
  Sex: Male

DRUGS (8)
  1. EXELON [Suspect]
     Dosage: 4.6 MG, QD
     Dates: start: 20081127
  2. NITRODERM [Concomitant]
  3. CRESTOR [Concomitant]
  4. KARDEGIC [Concomitant]
     Dosage: 75
  5. AMIODARONE [Concomitant]
     Dosage: 0.5 DF 5 DAYS PER WEEK
  6. TRINITRINE [Concomitant]
  7. COVERSYL [Concomitant]
  8. IPERTEN [Concomitant]

REACTIONS (4)
  - HYPOTONIA [None]
  - LOSS OF CONSCIOUSNESS [None]
  - MALAISE [None]
  - SYNCOPE [None]
